FAERS Safety Report 16137623 (Version 1)
Quarter: 2019Q1

REPORT INFORMATION
  Report Type: Spontaneous
  Country: US (occurrence: US)
  Receive Date: 20190330
  Receipt Date: 20190330
  Transmission Date: 20190418
  Serious: Yes (Death)
  Sender: FDA-Public Use
  Company Number: US-ROCHE-2292215

PATIENT
  Age: 69 Year
  Sex: Female

DRUGS (1)
  1. XELODA [Suspect]
     Active Substance: CAPECITABINE
     Indication: PRODUCT USED FOR UNKNOWN INDICATION
     Dosage: THERAPY STATUS AT TIME OF DEATH: UNKNOWN
     Route: 048
     Dates: start: 20190105

REACTIONS (1)
  - Death [Fatal]

NARRATIVE: CASE EVENT DATE: 20190218
